FAERS Safety Report 8549507-6 (Version None)
Quarter: 2012Q3

REPORT INFORMATION
  Report Type: 
  Country: None (occurrence: None)
  Receive Date: 20120730
  Receipt Date: 20120716
  Transmission Date: 20120928
  Serious: Yes (Hospitalization)
  Sender: FDA-Public Use
  Company Number: IR-MYLANLABS-2012S1014704

PATIENT
  Age: 30 Month
  Sex: Male

DRUGS (1)
  1. METHADON HYDROCHLORIDE TAB [Suspect]
     Dosage: POSSIBILITY OF 5MG TABLET INGESTION
     Route: 048

REACTIONS (8)
  - ENCEPHALOPATHY [None]
  - POISONING [None]
  - HYDROCEPHALUS [None]
  - LOSS OF CONSCIOUSNESS [None]
  - TORTICOLLIS [None]
  - RESTLESSNESS [None]
  - POSTURING [None]
  - MIOSIS [None]
